FAERS Safety Report 20662193 (Version 1)
Quarter: 2022Q2

REPORT INFORMATION
  Report Type: Spontaneous
  Country: CN (occurrence: CN)
  Receive Date: 20220401
  Receipt Date: 20220401
  Transmission Date: 20220721
  Serious: Yes (Hospitalization)
  Sender: FDA-Public Use
  Company Number: CN-BoehringerIngelheim-2022-BI-160614

PATIENT
  Age: 8 Decade
  Sex: Female

DRUGS (1)
  1. ALTEPLASE [Suspect]
     Active Substance: ALTEPLASE
     Indication: Cerebral infarction
     Route: 065

REACTIONS (3)
  - Brain oedema [Recovering/Resolving]
  - Cerebral infarction [Recovering/Resolving]
  - Hyperpyrexia [Recovering/Resolving]
